FAERS Safety Report 6145693-6 (Version None)
Quarter: 2009Q2

REPORT INFORMATION
  Report Type: 
  Country: None (occurrence: None)
  Receive Date: 20090407
  Receipt Date: 20090331
  Transmission Date: 20091009
  Serious: Yes (Hospitalization)
  Sender: FDA-Public Use
  Company Number: GR-BRISTOL-MYERS SQUIBB COMPANY-14572002

PATIENT
  Age: 80 Year
  Sex: Female

DRUGS (4)
  1. METFORMIN HCL [Suspect]
     Indication: TYPE 2 DIABETES MELLITUS
  2. GLIBENCLAMIDE [Concomitant]
  3. CORTICOSTEROID [Concomitant]
     Route: 055
  4. AMLODIPINE [Concomitant]

REACTIONS (3)
  - ACIDOSIS [None]
  - BLOOD LACTIC ACID INCREASED [None]
  - GASTROENTERITIS [None]
